FAERS Safety Report 13753832 (Version 1)
Quarter: 2017Q3

REPORT INFORMATION
  Report Type: Report from Study
  Country: US (occurrence: US)
  Receive Date: 20170713
  Receipt Date: 20170713
  Transmission Date: 20171127
  Serious: Yes (Hospitalization, Other)
  Sender: FDA-Public Use
  Company Number: US-GILEAD-2017-0282217

PATIENT
  Age: 73 Year
  Sex: Male

DRUGS (1)
  1. RANOLAZINE. [Suspect]
     Active Substance: RANOLAZINE
     Indication: ANGINA PECTORIS
     Dosage: 1000 MG, UNK
     Route: 048
     Dates: start: 201212

REACTIONS (6)
  - Procedural complication [Unknown]
  - Cardiac disorder [Unknown]
  - Vascular graft [Unknown]
  - Cataract [Unknown]
  - Stent placement [Unknown]
  - Myocardial infarction [Unknown]
